FAERS Safety Report 26188830 (Version 1)
Quarter: 2025Q4

REPORT INFORMATION
  Report Type: Spontaneous
  Country: US (occurrence: US)
  Receive Date: 20251222
  Receipt Date: 20251222
  Transmission Date: 20260118
  Serious: Yes (Disabling, Other)
  Sender: US WORLDMEDS
  Company Number: US-USWM-UWM202512-000197

PATIENT
  Sex: Female

DRUGS (1)
  1. EFLORNITHINE [Suspect]
     Active Substance: EFLORNITHINE
     Indication: Neuroblastoma
     Dosage: NOT PROVIDED

REACTIONS (7)
  - Dysstasia [Unknown]
  - Walking disability [Unknown]
  - Sitting disability [Unknown]
  - Haematemesis [Unknown]
  - Neoplasm progression [Unknown]
  - Epistaxis [Unknown]
  - Fall [Unknown]

NARRATIVE: CASE EVENT DATE: 20250101
